FAERS Safety Report 8452669-2 (Version None)
Quarter: 2012Q2

REPORT INFORMATION
  Report Type: 
  Country: None (occurrence: None)
  Receive Date: 20120620
  Receipt Date: 20120615
  Transmission Date: 20120825
  Serious: Yes (Other)
  Sender: FDA-Public Use
  Company Number: PHHY2012CA052193

PATIENT
  Sex: Female

DRUGS (3)
  1. ZOLEDRONOC ACID [Suspect]
     Route: 042
     Dates: start: 20110616
  2. ZOLEDRONOC ACID [Suspect]
     Route: 042
     Dates: start: 20100611
  3. ZOLEDRONOC ACID [Suspect]
     Indication: OSTEOPOROSIS
     Route: 042
     Dates: start: 20090605

REACTIONS (2)
  - BLOOD THYROID STIMULATING HORMONE DECREASED [None]
  - GLOMERULAR FILTRATION RATE DECREASED [None]
